FAERS Safety Report 9575246 (Version 3)
Quarter: 2013Q4

REPORT INFORMATION
  Report Type: Report from Study
  Country: JP (occurrence: JP)
  Receive Date: 20131001
  Receipt Date: 20131115
  Transmission Date: 20140711
  Serious: Yes (Other)
  Sender: FDA-Public Use
  Company Number: JP-GLAXOSMITHKLINE-B0925825A

PATIENT
  Age: 72 Year
  Sex: Female
  Weight: 60 kg

DRUGS (4)
  1. VOTRIENT 200MG [Suspect]
     Indication: ANGIOSARCOMA
     Dosage: 400MG PER DAY
     Route: 048
     Dates: start: 20130510, end: 20130622
  2. VOTRIENT 200MG [Suspect]
     Indication: ANGIOSARCOMA
     Dosage: 400MG PER DAY
     Route: 048
     Dates: start: 20130705, end: 20130723
  3. VOTRIENT 200MG [Suspect]
     Indication: ANGIOSARCOMA
     Dosage: 600MG PER DAY
     Route: 048
     Dates: start: 20130724, end: 20130730
  4. SODIUM RABEPRAZOLE [Concomitant]
     Indication: PROPHYLAXIS
     Route: 048

REACTIONS (6)
  - Hypertension [Recovered/Resolved]
  - Thyroid function test abnormal [Recovered/Resolved]
  - Platelet count decreased [Unknown]
  - Malaise [Recovered/Resolved]
  - Nausea [Recovered/Resolved]
  - White blood cell count decreased [Recovered/Resolved]
